FAERS Safety Report 17006717 (Version 1)
Quarter: 2019Q4

REPORT INFORMATION
  Report Type: Spontaneous
  Country: US (occurrence: US)
  Receive Date: 20191106
  Receipt Date: 20191106
  Transmission Date: 20200122
  Serious: Yes (Other)
  Sender: FDA-Public Use
  Company Number: None

PATIENT
  Age: 53 Year
  Sex: Female

DRUGS (8)
  1. LEVOCETIRIZINE [Suspect]
     Active Substance: LEVOCETIRIZINE
     Indication: PRODUCT USED FOR UNKNOWN INDICATION
     Dosage: ?          QUANTITY:1 TABLET(S);?
     Route: 048
     Dates: start: 20191022, end: 20191023
  2. SELENIUM [Concomitant]
     Active Substance: SELENIUM
  3. A + D, B COMPLEX [Concomitant]
  4. PROBIOTIC [Concomitant]
     Active Substance: PROBIOTICS NOS
  5. MAGNESIUM [Concomitant]
     Active Substance: MAGNESIUM
  6. CALCIUM [Concomitant]
     Active Substance: CALCIUM
  7. FISH OIL [Concomitant]
     Active Substance: FISH OIL
  8. MULTI [Concomitant]

REACTIONS (15)
  - Insomnia [None]
  - Muscle spasms [None]
  - Cold sweat [None]
  - Hypersensitivity [None]
  - Product substitution issue [None]
  - Cough [None]
  - Eye pruritus [None]
  - Feeling cold [None]
  - Dry throat [None]
  - Fatigue [None]
  - Oral discomfort [None]
  - Therapeutic product effect decreased [None]
  - Rhinorrhoea [None]
  - Muscular weakness [None]
  - Pulmonary congestion [None]

NARRATIVE: CASE EVENT DATE: 20191022
